FAERS Safety Report 21310627 (Version 4)
Quarter: 2023Q1

REPORT INFORMATION
  Report Type: Report from Study
  Country: US (occurrence: US)
  Receive Date: 20220909
  Receipt Date: 20230109
  Transmission Date: 20230417
  Serious: No
  Sender: FDA-Public Use
  Company Number: US-NOVARTISTESTPH-NVSC2022US203449

PATIENT
  Sex: Female

DRUGS (1)
  1. KISQALI [Suspect]
     Active Substance: RIBOCICLIB
     Indication: Breast cancer
     Dosage: 600 MG, QD
     Route: 048
     Dates: start: 202208

REACTIONS (10)
  - Pain in extremity [Recovering/Resolving]
  - Blister [Not Recovered/Not Resolved]
  - Skin exfoliation [Not Recovered/Not Resolved]
  - Pallor [Unknown]
  - Rash erythematous [Unknown]
  - Nausea [Unknown]
  - White blood cell count decreased [Unknown]
  - Rash [Not Recovered/Not Resolved]
  - Rash pruritic [Unknown]
  - Product dose omission issue [Unknown]
